FAERS Safety Report 13188537 (Version 1)
Quarter: 2017Q1

REPORT INFORMATION
  Report Type: Spontaneous
  Country: US (occurrence: US)
  Receive Date: 20170204
  Receipt Date: 20170204
  Transmission Date: 20170428
  Serious: Yes (Other)
  Sender: FDA-Public Use
  Company Number: None

PATIENT
  Age: 61 Year
  Sex: Male
  Weight: 105.7 kg

DRUGS (5)
  1. 1 ADAY [Concomitant]
  2. MOROPHINE SULFATE IMM REL [Suspect]
     Active Substance: MORPHINE SULFATE
     Indication: RHEUMATOID ARTHRITIS
     Dosage: ?          QUANTITY:120 TABLET(S);?
     Route: 048
     Dates: start: 20170202, end: 20170203
  3. MORPHINE [Concomitant]
     Active Substance: MORPHINE
  4. DEXILANT [Concomitant]
     Active Substance: DEXLANSOPRAZOLE
  5. DIAZEPAM. [Concomitant]
     Active Substance: DIAZEPAM

REACTIONS (2)
  - Swelling [None]
  - Muscle disorder [None]

NARRATIVE: CASE EVENT DATE: 20170202
